FAERS Safety Report 15856373 (Version 1)
Quarter: 2019Q1

REPORT INFORMATION
  Report Type: Other
  Country: IT (occurrence: IT)
  Receive Date: 20190123
  Receipt Date: 20190123
  Transmission Date: 20190417
  Serious: Yes (Other)
  Sender: FDA-Public Use
  Company Number: IT-LUPIN PHARMACEUTICALS INC.-2019-00230

PATIENT
  Age: 27 Year
  Sex: Female

DRUGS (5)
  1. LEVETIRACETAM. [Suspect]
     Active Substance: LEVETIRACETAM
     Dosage: DOSE DECREASED
     Route: 048
  2. LEVETIRACETAM. [Suspect]
     Active Substance: LEVETIRACETAM
     Indication: GENERALISED NON-CONVULSIVE EPILEPSY
     Dosage: 3 G, QD
     Route: 048
  3. RIVOTRIL [Concomitant]
     Active Substance: CLONAZEPAM
     Indication: PRODUCT USED FOR UNKNOWN INDICATION
     Dosage: 2.5 MG/ML, UNK
     Route: 065
  4. GARDENALE [Suspect]
     Active Substance: PHENOBARBITAL
     Indication: GENERALISED NON-CONVULSIVE EPILEPSY
     Dosage: 100 MG, QD
     Route: 048
  5. GARDENALE [Suspect]
     Active Substance: PHENOBARBITAL
     Dosage: DOSE DECREASED
     Route: 048

REACTIONS (2)
  - Dyspnoea [Recovering/Resolving]
  - Seizure [Recovering/Resolving]

NARRATIVE: CASE EVENT DATE: 20180428
